FAERS Safety Report 8548704-3 (Version None)
Quarter: 2012Q2

REPORT INFORMATION
  Report Type: 
  Country: None (occurrence: None)
  Receive Date: 20120416
  Receipt Date: 20101229
  Transmission Date: 20120825
  Serious: Yes (Other)
  Sender: FDA-Public Use
  Company Number: PHHY2010US72246

PATIENT
  Age: 72 Year
  Sex: Female
  Weight: 71.7 kg

DRUGS (3)
  1. TOPROL-XL [Concomitant]
  2. HYDROCHLOROTHIAZIDE [Concomitant]
  3. DIOVAN [Suspect]
     Indication: HYPERTENSION
     Dosage: 80 MG ; 320 MG, ORAL ; 160 MG ; 320 MG
     Route: 048

REACTIONS (11)
  - FEELING ABNORMAL [None]
  - DIZZINESS [None]
  - MALAISE [None]
  - ABDOMINAL DISCOMFORT [None]
  - BLOOD PRESSURE DECREASED [None]
  - DISCOMFORT [None]
  - DRUG EFFECT DECREASED [None]
  - WRONG TECHNIQUE IN DRUG USAGE PROCESS [None]
  - LOSS OF CONSCIOUSNESS [None]
  - HEAD DISCOMFORT [None]
  - DRUG EFFECT INCREASED [None]
